FAERS Safety Report 10077810 (Version 1)
Quarter: 2014Q2

REPORT INFORMATION
  Report Type: Spontaneous
  Country: DE (occurrence: DE)
  Receive Date: 20140414
  Receipt Date: 20140414
  Transmission Date: 20141212
  Serious: Yes (Death, Other)
  Sender: FDA-Public Use
  Company Number: PHHY2014DE045512

PATIENT
  Sex: 0

DRUGS (8)
  1. CICLOSPORIN [Suspect]
     Indication: GRAFT VERSUS HOST DISEASE
  2. ETOPOSIDE [Suspect]
     Dosage: 30 MG/KG, UNK
     Route: 042
  3. MYCOPHENOLATE MOFETIL [Suspect]
     Indication: GRAFT VERSUS HOST DISEASE
  4. BUSULFAN [Suspect]
     Dosage: 13.2 MG/KG, UNK
     Route: 042
  5. CYCLOPHOSPHAMIDE [Suspect]
     Dosage: 120 MG/KG, UNK
     Route: 042
  6. IDARUBICIN [Concomitant]
     Dosage: 10 MG/M2, BID
  7. CYTOSINE ARABINOSIDE [Concomitant]
     Dosage: 1000 MG/M2, TID
  8. FLUDARABINE [Concomitant]
     Dosage: 30 MG/M2, UNK

REACTIONS (2)
  - Disease progression [Fatal]
  - Chronic lymphocytic leukaemia [Unknown]
